FAERS Safety Report 9185047 (Version 1)
Quarter: 2013Q1

REPORT INFORMATION
  Report Type: Spontaneous
  Country: ES (occurrence: ES)
  Receive Date: 20130325
  Receipt Date: 20130325
  Transmission Date: 20140127
  Serious: Yes (Death, Other)
  Sender: FDA-Public Use
  Company Number: ES-CELGENEUS-144-21880-13032357

PATIENT
  Sex: 0

DRUGS (1)
  1. REVLIMID [Suspect]
     Indication: 5Q MINUS SYNDROME
     Route: 048

REACTIONS (4)
  - Death [Fatal]
  - Acute myeloid leukaemia [Unknown]
  - 5q minus syndrome [Unknown]
  - No therapeutic response [Unknown]
